FAERS Safety Report 18569114 (Version 1)
Quarter: 2020Q4

REPORT INFORMATION
  Report Type: Spontaneous
  Country: CO (occurrence: CO)
  Receive Date: 20201202
  Receipt Date: 20201202
  Transmission Date: 20210114
  Serious: Yes (Other)
  Sender: FDA-Public Use
  Company Number: CO-AMGEN-COLSP2020191946

PATIENT
  Age: 21 Year
  Weight: 40 kg

DRUGS (1)
  1. AMGEVITA [Suspect]
     Active Substance: ADALIMUMAB
     Indication: ANKYLOSING SPONDYLITIS
     Dosage: UNK
     Route: 065
     Dates: start: 201912, end: 202005

REACTIONS (11)
  - Hypotension [Unknown]
  - Weight decreased [Not Recovered/Not Resolved]
  - Tachycardia [Unknown]
  - Urosepsis [Unknown]
  - Metabolic acidosis [Unknown]
  - Immunosuppression [Unknown]
  - Thrombocytosis [Unknown]
  - Hypochromic anaemia [Unknown]
  - Pulmonary tuberculosis [Unknown]
  - Diarrhoea [Unknown]
  - Abdominal pain [Not Recovered/Not Resolved]

NARRATIVE: CASE EVENT DATE: 2020
